FAERS Safety Report 15189595 (Version 1)
Quarter: 2018Q3

REPORT INFORMATION
  Report Type: Spontaneous
  Country: IT (occurrence: IT)
  Receive Date: 20180724
  Receipt Date: 20180724
  Transmission Date: 20181010
  Serious: Yes (Life-Threatening, Other)
  Sender: FDA-Public Use
  Company Number: IT-AUROBINDO-AUR-APL-2018-037083

PATIENT
  Age: 74 Year
  Sex: Male
  Weight: 83 kg

DRUGS (3)
  1. LEVOFLOXACIN FILMCOATED TABLET [Suspect]
     Active Substance: LEVOFLOXACIN
     Indication: INFLUENZA
     Dosage: 500 MILLIGRAM, ONCE A DAY
     Route: 048
     Dates: start: 20180129, end: 20180129
  2. TACHIPIRINA [Concomitant]
     Active Substance: ACETAMINOPHEN
     Indication: PRODUCT USED FOR UNKNOWN INDICATION
     Dosage: UNK
     Route: 065
  3. CARDIOASPIRIN [Concomitant]
     Active Substance: ASPIRIN
     Indication: PRODUCT USED FOR UNKNOWN INDICATION
     Dosage: UNK
     Route: 065

REACTIONS (3)
  - Dysphagia [Recovered/Resolved]
  - Sensation of foreign body [Recovered/Resolved]
  - Laryngotracheal oedema [Recovered/Resolved]

NARRATIVE: CASE EVENT DATE: 20180129
